FAERS Safety Report 8906416 (Version 1)
Quarter: 2012Q4

REPORT INFORMATION
  Report Type: 
  Country: JP (occurrence: None)
  Receive Date: 20121107
  Receipt Date: 20121107
  Transmission Date: 20130627
  Serious: Yes (Hospitalization)
  Sender: FDA-Public Use
  Company Number: VENL20120013

PATIENT
  Age: 30 Year
  Sex: Female

DRUGS (3)
  1. VENLAFAXINE HCL [Suspect]
     Indication: SUICIDE ATTEMPT
     Dosage: 150 MG PRESCRIPTION AT ONCE, Oral
     Route: 048
  2. BUPROPION [Suspect]
     Indication: SUICIDE ATTEMPT
     Dosage: 300 MG, 1 MONTH PRESCRIPTION AT ONCE, Oral
     Route: 048
  3. LORAZEPAM TABLETS (LORAZEPAM) (3 MILLIGRAM, TABLETS) (LORAZEPAM) [Concomitant]

REACTIONS (27)
  - Intentional overdose [None]
  - Suicide attempt [None]
  - Myoclonus [None]
  - Pyrexia [None]
  - Tachycardia [None]
  - Electrocardiogram QRS complex prolonged [None]
  - Somnolence [None]
  - Confusional state [None]
  - Respiratory distress [None]
  - Blood pressure diastolic decreased [None]
  - Leukocytosis [None]
  - Blood creatine phosphokinase increased [None]
  - Blood creatinine increased [None]
  - Serotonin syndrome [None]
  - Agitation [None]
  - Altered state of consciousness [None]
  - Alanine aminotransferase increased [None]
  - Dyskinesia [None]
  - Akathisia [None]
  - Drug withdrawal syndrome [None]
  - Choreoathetosis [None]
  - Memory impairment [None]
  - Speech disorder [None]
  - Executive dysfunction [None]
  - Central nervous system necrosis [None]
  - Hypoxia [None]
  - Toxicity to various agents [None]
